FAERS Safety Report 18742762 (Version 1)
Quarter: 2021Q1

REPORT INFORMATION
  Report Type: Spontaneous
  Country: CN (occurrence: CN)
  Receive Date: 20210115
  Receipt Date: 20210115
  Transmission Date: 20210419
  Serious: Yes (Other)
  Sender: FDA-Public Use
  Company Number: CN-ASTRAZENECA-2021A003345

PATIENT
  Age: 19359 Day
  Sex: Male
  Weight: 97 kg

DRUGS (3)
  1. ATROVENT [Suspect]
     Active Substance: IPRATROPIUM BROMIDE
     Indication: SPUTUM RETENTION
     Dosage: 0.5MG, TWICE DAILY
     Route: 055
     Dates: start: 20210101, end: 20210101
  2. PULMICORT RESPULES [Suspect]
     Active Substance: BUDESONIDE
     Indication: SPUTUM RETENTION
     Route: 055
     Dates: start: 20210101, end: 20210101
  3. BRICANYL [Suspect]
     Active Substance: TERBUTALINE SULFATE
     Indication: SPUTUM RETENTION
     Route: 055
     Dates: start: 20210101, end: 20210101

REACTIONS (1)
  - Palpitations [Recovering/Resolving]

NARRATIVE: CASE EVENT DATE: 20210101
